FAERS Safety Report 8756639 (Version 2)
Quarter: 2014Q1

REPORT INFORMATION
  Report Type: Report from Study
  Country: CA (occurrence: CA)
  Receive Date: 20120828
  Receipt Date: 20140226
  Transmission Date: 20141002
  Serious: Yes (Other)
  Sender: FDA-Public Use
  Company Number: CA-JNJFOC-20120812094

PATIENT
  Age: 79 Year
  Sex: Female
  Weight: 80 kg

DRUGS (7)
  1. REMICADE [Suspect]
     Indication: COLITIS ULCERATIVE
     Route: 042
     Dates: start: 200602
  2. HCTZ [Concomitant]
     Indication: HYPERTENSION
     Route: 065
  3. DOMPERIDONE [Concomitant]
     Route: 065
  4. METHOTREXATE [Concomitant]
     Indication: COLITIS ULCERATIVE
     Route: 048
  5. POTASSIUM [Concomitant]
     Indication: HYPOKALAEMIA
     Route: 065
  6. RAMIPRIL [Concomitant]
     Route: 065
  7. CELEBREX [Concomitant]
     Indication: PAIN
     Route: 065

REACTIONS (1)
  - Phlebitis [Recovered/Resolved]
